FAERS Safety Report 11603059 (Version 1)
Quarter: 2015Q4

REPORT INFORMATION
  Report Type: Spontaneous
  Country: US (occurrence: None)
  Receive Date: 20151005
  Receipt Date: 20151005
  Transmission Date: 20160304
  Serious: Yes (Disabling, Other)
  Sender: FDA-Public Use
  Company Number: None

PATIENT
  Age: 48 Year
  Sex: Female
  Weight: 77.11 kg

DRUGS (1)
  1. ARMOUR THYROID [Suspect]
     Active Substance: THYROID, PORCINE\THYROID, UNSPECIFIED
     Indication: SECONDARY HYPOTHYROIDISM
     Dosage: 1 PILL THREE TIMES DAILY
     Route: 048
     Dates: start: 20150511, end: 20151004

REACTIONS (8)
  - Alopecia [None]
  - Lethargy [None]
  - Pain [None]
  - Product substitution issue [None]
  - Blood thyroid stimulating hormone abnormal [None]
  - Product odour abnormal [None]
  - Laboratory test abnormal [None]
  - Product quality issue [None]

NARRATIVE: CASE EVENT DATE: 20151004
